FAERS Safety Report 6308585-5 (Version None)
Quarter: 2009Q3

REPORT INFORMATION
  Report Type: 
  Country: None (occurrence: None)
  Receive Date: 20090811
  Receipt Date: 20090727
  Transmission Date: 20100115
  Serious: Yes (Life-Threatening, Hospitalization, Other)
  Sender: FDA-Public Use
  Company Number: GB-DEXPHARM-20091104

PATIENT
  Age: 54 Year
  Sex: Male

DRUGS (1)
  1. HIBISCRUB ACTIVE SUBSTANCES: CHLORHEXIDINE GLUCONATE [Suspect]
     Dosage: ORAL
     Route: 048
     Dates: start: 20090702, end: 20090702

REACTIONS (6)
  - CONFUSIONAL STATE [None]
  - GLASGOW COMA SCALE ABNORMAL [None]
  - INTENTIONAL DRUG MISUSE [None]
  - PNEUMONIA ASPIRATION [None]
  - RENAL IMPAIRMENT [None]
  - VOMITING [None]
